FAERS Safety Report 6534324 (Version 3)
Quarter: 2012Q4

REPORT INFORMATION
  Report Type: 
  Country: US (occurrence: US)
  Receive Date: 20080116
  Receipt Date: 20121025
  Transmission Date: 20130627
  Serious: Yes (Hospitalization)
  Sender: FDA-Public Use
  Company Number: 2008BI000363

PATIENT
  Age: 35 Year
  Sex: Female
  Weight: 52 kg

DRUGS (3)
  1. AVONEX [Suspect]
     Indication: MULTIPLE SCLEROSIS
     Route: 030
     Dates: start: 20000829, end: 2003
  2. AVONEX [Suspect]
     Indication: MULTIPLE SCLEROSIS
     Route: 030
     Dates: start: 2003, end: 20071016
  3. CELLCEPT [Concomitant]
     Indication: MULTIPLE SCLEROSIS
     Dates: start: 2003

REACTIONS (4)
  - Hip arthroplasty [Recovered/Resolved]
  - Optic neuritis [Recovered/Resolved]
  - Multiple sclerosis [Unknown]
  - Cataract [Recovered/Resolved]
